FAERS Safety Report 7856792 (Version 6)
Quarter: 2013Q3

REPORT INFORMATION
  Report Type: Report from Study
  Country: IL (occurrence: IL)
  Receive Date: 20110315
  Receipt Date: 20130830
  Transmission Date: 20140515
  Serious: Yes (Hospitalization)
  Sender: FDA-Public Use
  Company Number: PHHY2011IL17312

PATIENT
  Age: 54 Year
  Sex: Female
  Weight: 59 kg

DRUGS (7)
  1. SANDOSTATIN LAR [Suspect]
     Indication: CARCINOID TUMOUR
     Dosage: 30 MG, 1Q2W
     Dates: start: 20070807
  2. SANDOSTATIN LAR [Suspect]
     Dosage: 30 MG, EVERY 28 DAYS
     Dates: start: 20111103
  3. SANDOSTATIN LAR [Suspect]
     Dosage: 30 MG, EVERY 28 DAYS
     Dates: start: 20120301
  4. SANDOSTATIN LAR [Suspect]
     Dosage: 30 MG, EVERY 4TH WEEK
     Dates: start: 20121023
  5. SANDOSTATIN LAR [Suspect]
     Dosage: 30 MG, EVERY 2 WEEK
     Route: 065
     Dates: start: 20130422
  6. SANDOSTATIN LAR [Suspect]
     Dosage: 30 MG, 1Q2W
     Dates: start: 20130821
  7. GLUCOPHAGE [Concomitant]
     Dosage: UNK UKN, UNK

REACTIONS (2)
  - Asthenia [Unknown]
  - Malignant neoplasm progression [Unknown]
